FAERS Safety Report 18239539 (Version 2)
Quarter: 2020Q4

REPORT INFORMATION
  Report Type: Spontaneous
  Country: US (occurrence: US)
  Receive Date: 20200908
  Receipt Date: 20201006
  Transmission Date: 20210113
  Serious: No
  Sender: FDA-Public Use
  Company Number: US-ASTRAZENECA-2020SF05710

PATIENT
  Age: 25380 Day
  Sex: Female
  Weight: 97.5 kg

DRUGS (2)
  1. ALBUTEROL NEBULIZER [Concomitant]
     Active Substance: ALBUTEROL
     Indication: ASTHMA
     Dosage: AS REQUIRED
     Route: 055
  2. SYMBICORT [Suspect]
     Active Substance: BUDESONIDE\FORMOTEROL FUMARATE DIHYDRATE
     Indication: ASTHMA
     Dosage: 160/4.5 MCG, TAKES 2 PUFFS, BID
     Route: 055

REACTIONS (7)
  - Product dose omission issue [Unknown]
  - Dyspnoea [Unknown]
  - Product taste abnormal [Unknown]
  - Insurance issue [Unknown]
  - Wheezing [Unknown]
  - Device issue [Unknown]
  - Intentional device misuse [Unknown]

NARRATIVE: CASE EVENT DATE: 20200811
